FAERS Safety Report 10213596 (Version 1)
Quarter: 2014Q2

REPORT INFORMATION
  Report Type: Spontaneous
  Country: AU (occurrence: AU)
  Receive Date: 20140603
  Receipt Date: 20140603
  Transmission Date: 20141212
  Serious: Yes (Life-Threatening, Other)
  Sender: FDA-Public Use
  Company Number: AU-NOVOPROD-411387

PATIENT
  Age: 72 Year
  Sex: Female

DRUGS (4)
  1. VICTOZA [Suspect]
     Indication: DIABETES MELLITUS
     Dosage: 0.6 MG
     Route: 058
     Dates: start: 201401
  2. VICTOZA [Suspect]
     Dosage: 1.2 MG
     Route: 058
  3. VICTOZA [Suspect]
     Dosage: 0.6 MG
     Route: 058
     Dates: end: 20140519
  4. NOVOMIX 30 [Concomitant]
     Indication: DIABETES MELLITUS
     Dosage: 80 U, BID (40U MORNING, 40U EVENING)
     Route: 058

REACTIONS (6)
  - Pancreatic carcinoma [Unknown]
  - Hepatic cancer [Unknown]
  - Weight decreased [Unknown]
  - Aphagia [Unknown]
  - Nausea [Unknown]
  - Device issue [Unknown]
